FAERS Safety Report 8049492-X (Version None)
Quarter: 2012Q1

REPORT INFORMATION
  Report Type: 
  Country: None (occurrence: None)
  Receive Date: 20120111
  Receipt Date: 20120106
  Transmission Date: 20120608
  Serious: Yes (Other)
  Sender: FDA-Public Use
  Company Number: 2QLT2012US01033

PATIENT

DRUGS (1)
  1. VISUDYNE [Suspect]
     Indication: PRODUCT USED FOR UNKNOWN INDICATION

REACTIONS (2)
  - VISUAL ACUITY REDUCED [None]
  - MACULAR HOLE [None]
